FAERS Safety Report 8305450-9 (Version None)
Quarter: 2012Q2

REPORT INFORMATION
  Report Type: 
  Country: None (occurrence: None)
  Receive Date: 20120423
  Receipt Date: 20120419
  Transmission Date: 20120825
  Serious: Yes (Death)
  Sender: FDA-Public Use
  Company Number: US-GLAXOSMITHKLINE-A0799394A

PATIENT
  Age: 50 Year
  Sex: Male
  Weight: 145 kg

DRUGS (6)
  1. AVANDIA [Suspect]
     Indication: DIABETES MELLITUS
     Dosage: 8MG PER DAY
     Route: 048
     Dates: start: 20040714, end: 20070715
  2. HYDROCHLOROTHIAZIDE [Concomitant]
  3. ZOCOR [Concomitant]
  4. GLIPIZIDE [Concomitant]
  5. METFORMIN HCL [Concomitant]
  6. DIOVAN [Concomitant]

REACTIONS (3)
  - CARDIAC FAILURE [None]
  - MYOCARDIAL INFARCTION [None]
  - ARRHYTHMIA [None]
